FAERS Safety Report 12225063 (Version 2)
Quarter: 2016Q2

REPORT INFORMATION
  Report Type: Spontaneous
  Country: CN (occurrence: CN)
  Receive Date: 20160331
  Receipt Date: 20160408
  Transmission Date: 20160815
  Serious: Yes (Other)
  Sender: FDA-Public Use
  Company Number: PHHY2016CN041443

PATIENT
  Age: 21 Year
  Sex: Female

DRUGS (1)
  1. SANDIMMUN NEORAL [Suspect]
     Active Substance: CYCLOSPORINE
     Indication: APLASTIC ANAEMIA
     Dosage: 300MG PER DAY (6 TABLETS IN THE MORNING AND 6 TABLETS IN THE EVENING)
     Route: 048

REACTIONS (4)
  - Intestinal stenosis [Unknown]
  - Platelet count decreased [Unknown]
  - Off label use [Unknown]
  - Therapeutic response unexpected [Unknown]
